FAERS Safety Report 21417603 (Version 1)
Quarter: 2022Q4

REPORT INFORMATION
  Report Type: Spontaneous
  Country: FR (occurrence: FR)
  Receive Date: 20221006
  Receipt Date: 20221006
  Transmission Date: 20230112
  Serious: Yes (Death, Life-Threatening, Hospitalization, Other)
  Sender: FDA-Public Use
  Company Number: FR-SA-2022SA407881

PATIENT
  Age: 79 Year
  Sex: Male

DRUGS (2)
  1. DOCETAXEL [Interacting]
     Active Substance: DOCETAXEL
     Indication: Prostate cancer metastatic
     Dosage: 35 MG/M2 (DAY 1 AND DAY8EVERY21DAYS)
  2. DRONEDARONE [Interacting]
     Active Substance: DRONEDARONE
     Indication: Atrial fibrillation
     Dosage: 400 MG, BID

REACTIONS (18)
  - Mucosal inflammation [Fatal]
  - Drug interaction [Fatal]
  - Accidental overdose [Fatal]
  - Gastrointestinal inflammation [Fatal]
  - Pyrexia [Fatal]
  - Diarrhoea [Fatal]
  - Stomatitis [Fatal]
  - Beta haemolytic streptococcal infection [Fatal]
  - Febrile neutropenia [Fatal]
  - Acute respiratory failure [Fatal]
  - Septic shock [Fatal]
  - Conjunctivitis [Unknown]
  - Keratitis [Unknown]
  - Erythema [Unknown]
  - Skin lesion [Unknown]
  - Condition aggravated [Unknown]
  - Sepsis [Fatal]
  - Atrial fibrillation [Unknown]
